FAERS Safety Report 7812145-4 (Version None)
Quarter: 2011Q4

REPORT INFORMATION
  Report Type: 
  Country: None (occurrence: None)
  Receive Date: 20111013
  Receipt Date: 20111005
  Transmission Date: 20120403
  Serious: Yes (Other)
  Sender: FDA-Public Use
  Company Number: PHHY2011JP88995

PATIENT
  Age: 59 Year
  Sex: Female

DRUGS (3)
  1. PHENYTOIN [Concomitant]
     Indication: SIMPLE PARTIAL SEIZURES
     Route: 048
  2. CARBAMAZEPINE [Suspect]
     Indication: SIMPLE PARTIAL SEIZURES
     Route: 048
  3. VALPROATE SODIUM [Concomitant]
     Indication: SIMPLE PARTIAL SEIZURES

REACTIONS (4)
  - ENCEPHALITIS [None]
  - CEREBRAL ATROPHY [None]
  - STATUS EPILEPTICUS [None]
  - DRUG RASH WITH EOSINOPHILIA AND SYSTEMIC SYMPTOMS [None]
